FAERS Safety Report 8419623-8 (Version None)
Quarter: 2012Q2

REPORT INFORMATION
  Report Type: 
  Country: None (occurrence: None)
  Receive Date: 20120604
  Receipt Date: 20120604
  Transmission Date: 20120825
  Serious: Yes (Life-Threatening, Hospitalization)
  Sender: FDA-Public Use
  Company Number: None

PATIENT
  Age: 95 Year
  Sex: Female
  Weight: 57.1532 kg

DRUGS (2)
  1. AZITHROMYCIN [Suspect]
     Indication: BRONCHITIS
     Dosage: 2 TABLETS DAY 1, 1 TABLET DAYS 2-5 PO
     Route: 048
     Dates: start: 20120513, end: 20120516
  2. CHERATUSSIN AC SYRUP [Suspect]
     Indication: BRONCHITIS
     Dosage: 1 TO 2 TEASPOONS EVERY 6 HOURS PO
     Route: 048
     Dates: start: 20120513, end: 20120513

REACTIONS (1)
  - MYOCARDIAL INFARCTION [None]
